FAERS Safety Report 6037666-9 (Version None)
Quarter: 2009Q1

REPORT INFORMATION
  Report Type: 
  Country: None (occurrence: None)
  Receive Date: 20090114
  Receipt Date: 20090108
  Transmission Date: 20090719
  Serious: No
  Sender: FDA-Public Use
  Company Number: US-B.I. PHARMACEUTICALS,INC./RIDGEFIELD-2008-BP-18413BP

PATIENT
  Age: 73 Year
  Sex: Female
  Weight: 94 kg

DRUGS (18)
  1. MIRAPEX [Suspect]
     Indication: RESTLESS LEGS SYNDROME
     Dosage: .125MG
     Dates: start: 20081020, end: 20081031
  2. LYRICA [Concomitant]
  3. LEXAPRO [Concomitant]
  4. AZOR [Concomitant]
  5. MAXZIDE [Concomitant]
  6. POTASSIUM SUPPLEMENT [Concomitant]
  7. ASPIRIN [Concomitant]
  8. COMBIVENT [Concomitant]
  9. PULMICORT NEBULIZER [Concomitant]
  10. OXYCONTIN [Concomitant]
  11. PERCOCET [Concomitant]
  12. NABUMETON [Concomitant]
  13. PREVACID [Concomitant]
  14. AMITRIPTYLINE HCL [Concomitant]
  15. AZOPT EYE DROPS [Concomitant]
  16. AMBIEN [Concomitant]
  17. TEKTURNA [Concomitant]
  18. PLAVIX [Concomitant]

REACTIONS (2)
  - PRURITUS [None]
  - SKIN EXFOLIATION [None]
